FAERS Safety Report 18995445 (Version 9)
Quarter: 2021Q3

REPORT INFORMATION
  Report Type: Spontaneous
  Country: GB (occurrence: GB)
  Receive Date: 20210310
  Receipt Date: 20210810
  Transmission Date: 20211014
  Serious: Yes (Hospitalization)
  Sender: FDA-Public Use
  Company Number: GB-CELLTRION INC.-2021GB002382

PATIENT

DRUGS (21)
  1. REMSIMA [Suspect]
     Active Substance: INFLIXIMAB
     Indication: CROHN^S DISEASE
     Dosage: 610 MG EVERY 6 WEEKS (6 WEEKLY INFUSION)
     Route: 042
     Dates: start: 20210126
  2. SODIUM CHLORIDE INTRAVENOUS INFUSION BP 0.9% W/V [Suspect]
     Active Substance: SODIUM CHLORIDE
     Dosage: 490 MILLIGRAM COMPOUNDED IN A 250 ML BAG OF SODIUM CHLORIDE, EVERY 6 WEEKS (6 WEEKLY)
     Route: 042
  3. SODIUM CHLORIDE INTRAVENOUS INFUSION BP 0.9% W/V [Suspect]
     Active Substance: SODIUM CHLORIDE
     Dosage: UNK
     Route: 042
  4. REMSIMA [Suspect]
     Active Substance: INFLIXIMAB
     Dosage: OVER 30 MINUTES
     Route: 042
  5. WATER FOR INJECTION [Suspect]
     Active Substance: WATER
     Indication: MEDICATION DILUTION
     Dosage: OVER 30 MINUTES
     Route: 042
  6. SODIUM CHLORIDE INTRAVENOUS INFUSION BP 0.9% W/V [Suspect]
     Active Substance: SODIUM CHLORIDE
     Indication: MEDICATION DILUTION
     Dosage: OVER 30 MINUTES
     Route: 042
  7. SODIUM CHLORIDE INTRAVENOUS INFUSION BP 0.9% W/V [Suspect]
     Active Substance: SODIUM CHLORIDE
     Indication: CATHETER MANAGEMENT
     Dosage: OVER 30 MINUTES
     Route: 042
  8. REMSIMA [Suspect]
     Active Substance: INFLIXIMAB
     Indication: PRODUCT USED FOR UNKNOWN INDICATION
     Dosage: 610 MG EVERY 6 WEEKS (6 WEEKLY INFUSION)
     Route: 042
     Dates: start: 20210126
  9. REMSIMA [Suspect]
     Active Substance: INFLIXIMAB
     Dosage: 490 MILLIGRAM COMPOUNDED IN A 250 ML BAG OF SODIUM CHLORIDE, EVERY 6 WEEKS (6 WEEKLY)
     Route: 042
  10. SODIUM CHLORIDE INTRAVENOUS INFUSION BP 0.9% W/V [Suspect]
     Active Substance: SODIUM CHLORIDE
     Dosage: OVER 30 MINUTES (DOSAGE FORM OF 230)
     Route: 042
  11. WATER FOR INJECTION [Suspect]
     Active Substance: WATER
     Dosage: OVER 30 MINUTES
     Route: 042
  12. WATER FOR INJECTION [Suspect]
     Active Substance: WATER
     Dosage: OVER 30 MINUTES (DOSAGE FORM: 236)
     Route: 042
  13. REMSIMA [Suspect]
     Active Substance: INFLIXIMAB
     Dosage: 490 MILLIGRAM COMPOUNDED IN A 250 MG BAG OF SODIUM CHLORIDE, EVERY 6 WEEKS (6 WEEKLY)
     Route: 042
  14. SODIUM CHLORIDE INTRAVENOUS INFUSION BP 0.9% W/V [Suspect]
     Active Substance: SODIUM CHLORIDE
     Dosage: 490 MILLIGRAM COMPOUNDED IN A 250 ML BAG OF SODIUM CHLORIDE, EVERY 6 WEEKS (6 WEEKLY)
     Route: 042
  15. POSIFLUSH (SODIUM CHLORIDE) [Suspect]
     Active Substance: SODIUM CHLORIDE
     Indication: CATHETER MANAGEMENT
     Route: 042
  16. WATER FOR INJECTION [Suspect]
     Active Substance: WATER
     Dosage: OVER 30 MINUTES (DOSAGE FORM: 236)
     Route: 042
  17. REMSIMA [Suspect]
     Active Substance: INFLIXIMAB
     Indication: RHEUMATOID ARTHRITIS
     Dosage: 610 MG EVERY 6 WEEKS (6 WEEKLY INFUSION)
     Route: 042
     Dates: start: 20210126
  18. REMSIMA [Suspect]
     Active Substance: INFLIXIMAB
     Dosage: 490 MILLIGRAM COMPOUNDED IN A 250 ML BAG OF SODIUM CHLORIDE, EVERY 6 WEEKS (6 WEEKLY)
     Route: 042
  19. REMSIMA [Suspect]
     Active Substance: INFLIXIMAB
     Dosage: OVER 30 MINUTES
     Route: 042
  20. REMSIMA [Suspect]
     Active Substance: INFLIXIMAB
     Dosage: OVER 30 MINUTES
     Route: 042
  21. SODIUM CHLORIDE INTRAVENOUS INFUSION BP 0.9% W/V [Suspect]
     Active Substance: SODIUM CHLORIDE
     Dosage: OVER 30 MINUTES (DOSAGE FORM OF 230)
     Route: 042

REACTIONS (9)
  - General physical health deterioration [Unknown]
  - Localised infection [Recovered/Resolved]
  - Flatulence [Unknown]
  - Cellulitis [Recovering/Resolving]
  - Infection [Recovered/Resolved]
  - Weight decreased [Unknown]
  - Intentional dose omission [Unknown]
  - Lymphoedema [Not Recovered/Not Resolved]
  - Treatment delayed [Unknown]
